FAERS Safety Report 15820175 (Version 2)
Quarter: 2019Q1

REPORT INFORMATION
  Report Type: Report from Study
  Country: US (occurrence: US)
  Receive Date: 20190114
  Receipt Date: 20190322
  Transmission Date: 20190417
  Serious: Yes (Death, Other)
  Sender: FDA-Public Use
  Company Number: PHEH2019US001772

PATIENT
  Age: 58 Year
  Sex: Male
  Weight: 116.6 kg

DRUGS (1)
  1. ENTRESTO [Suspect]
     Active Substance: SACUBITRIL\VALSARTAN
     Indication: PRODUCT USED FOR UNKNOWN INDICATION
     Dosage: 1 DF (49 MG SACUBITRIL, 51 MG VALSARTAN), UNK
     Route: 048
     Dates: start: 20180806

REACTIONS (2)
  - Death [Fatal]
  - Myocardial infarction [Unknown]

NARRATIVE: CASE EVENT DATE: 20190110
